FAERS Safety Report 16043650 (Version 2)
Quarter: 2019Q4

REPORT INFORMATION
  Report Type: Spontaneous
  Country: US (occurrence: US)
  Receive Date: 20190306
  Receipt Date: 20191226
  Transmission Date: 20200122
  Serious: Yes (Hospitalization, Other)
  Sender: FDA-Public Use
  Company Number: US-ASTRAZENECA-2019SE36410

PATIENT
  Age: 39 Year
  Sex: Female
  Weight: 86.6 kg

DRUGS (168)
  1. PROTONIX [Suspect]
     Active Substance: PANTOPRAZOLE SODIUM
     Indication: GASTROOESOPHAGEAL REFLUX DISEASE
     Dosage: DRUG MENTIONED AS PANTOPRAZOLE-WYETH
     Route: 065
     Dates: start: 2014
  2. HYDROXYCHLOROQUINE [Concomitant]
     Active Substance: HYDROXYCHLOROQUINE
     Indication: SYSTEMIC LUPUS ERYTHEMATOSUS
     Dates: start: 2015
  3. AZITHROMYCIN ANHYDROUS. [Concomitant]
     Active Substance: AZITHROMYCIN ANHYDROUS
     Indication: ANTIBIOTIC THERAPY
     Dates: start: 2016
  4. AMOXICILLIN. [Concomitant]
     Active Substance: AMOXICILLIN
     Indication: ANTIBIOTIC THERAPY
     Dates: start: 2014
  5. NITROFURANTOIN. [Concomitant]
     Active Substance: NITROFURANTOIN
     Indication: ANTIBIOTIC THERAPY
     Dates: start: 2005
  6. METRONIDAZOLE. [Concomitant]
     Active Substance: METRONIDAZOLE
     Dates: start: 2007
  7. METRONIDAZOLE. [Concomitant]
     Active Substance: METRONIDAZOLE
     Dates: start: 2016
  8. METRONIDAZOLE. [Concomitant]
     Active Substance: METRONIDAZOLE
     Dates: start: 2017
  9. CLONAZEPAM. [Concomitant]
     Active Substance: CLONAZEPAM
     Dates: start: 2007
  10. CLONAZEPAM. [Concomitant]
     Active Substance: CLONAZEPAM
     Dates: start: 2015
  11. CLONAZEPAM. [Concomitant]
     Active Substance: CLONAZEPAM
     Dates: start: 2016
  12. PREDNISONE. [Concomitant]
     Active Substance: PREDNISONE
     Dates: start: 2012
  13. PREDNISONE. [Concomitant]
     Active Substance: PREDNISONE
     Dates: start: 2016
  14. AMLODIPINE [Concomitant]
     Active Substance: AMLODIPINE BESYLATE
     Dates: start: 2002
  15. ZOLPIDEM TARTRATE. [Concomitant]
     Active Substance: ZOLPIDEM TARTRATE
     Dates: start: 2012
  16. ARIPIPRAZOLE. [Concomitant]
     Active Substance: ARIPIPRAZOLE
     Dates: start: 2001
  17. ARIPIPRAZOLE. [Concomitant]
     Active Substance: ARIPIPRAZOLE
     Dates: start: 2002
  18. DIAZEPAM. [Concomitant]
     Active Substance: DIAZEPAM
     Dates: start: 2002
  19. DIAZEPAM. [Concomitant]
     Active Substance: DIAZEPAM
     Dates: start: 2012
  20. DULOXETINE. [Concomitant]
     Active Substance: DULOXETINE
     Dates: start: 2001
  21. BACLOFEN. [Concomitant]
     Active Substance: BACLOFEN
     Dates: start: 2013
  22. BACLOFEN. [Concomitant]
     Active Substance: BACLOFEN
     Dates: start: 2017
  23. PRILOSEC OTC [Suspect]
     Active Substance: OMEPRAZOLE MAGNESIUM
     Dosage: GENERIC
     Route: 048
  24. PROTONIX [Suspect]
     Active Substance: PANTOPRAZOLE SODIUM
     Indication: GASTROOESOPHAGEAL REFLUX DISEASE
     Route: 065
     Dates: start: 2002
  25. ACIPHEX [Suspect]
     Active Substance: RABEPRAZOLE SODIUM
     Indication: GASTROOESOPHAGEAL REFLUX DISEASE
     Route: 065
     Dates: start: 2007
  26. TRAMADOL. [Concomitant]
     Active Substance: TRAMADOL
     Indication: PAIN
     Dates: start: 2011
  27. HYDROCODONE [Concomitant]
     Active Substance: HYDROCODONE
     Indication: PAIN
     Dates: start: 2011
  28. HYDROCODONE [Concomitant]
     Active Substance: HYDROCODONE
     Indication: PAIN
     Dates: start: 2017
  29. HYDROXYCHLOROQUINE [Concomitant]
     Active Substance: HYDROXYCHLOROQUINE
     Indication: SYSTEMIC LUPUS ERYTHEMATOSUS
     Dates: start: 2016
  30. METRONIDAZOLE. [Concomitant]
     Active Substance: METRONIDAZOLE
     Dates: start: 2015
  31. KETOCONAZOLE. [Concomitant]
     Active Substance: KETOCONAZOLE
     Dates: start: 2002
  32. KETOCONAZOLE. [Concomitant]
     Active Substance: KETOCONAZOLE
     Dates: start: 2016
  33. CLONAZEPAM. [Concomitant]
     Active Substance: CLONAZEPAM
     Dates: start: 2001
  34. CLONAZEPAM. [Concomitant]
     Active Substance: CLONAZEPAM
     Dates: start: 2011
  35. PREDNISONE. [Concomitant]
     Active Substance: PREDNISONE
     Dates: start: 2014
  36. AMLODIPINE [Concomitant]
     Active Substance: AMLODIPINE BESYLATE
     Dates: start: 2014
  37. ZOLPIDEM TARTRATE. [Concomitant]
     Active Substance: ZOLPIDEM TARTRATE
     Dates: start: 2016
  38. ARIPIPRAZOLE. [Concomitant]
     Active Substance: ARIPIPRAZOLE
     Dates: start: 2014
  39. DIAZEPAM. [Concomitant]
     Active Substance: DIAZEPAM
     Dates: start: 2014
  40. DULOXETINE. [Concomitant]
     Active Substance: DULOXETINE
     Dates: start: 2012
  41. DULOXETINE. [Concomitant]
     Active Substance: DULOXETINE
     Dates: start: 2013
  42. ZALEPLON. [Concomitant]
     Active Substance: ZALEPLON
     Dates: start: 2013
  43. ZALEPLON. [Concomitant]
     Active Substance: ZALEPLON
     Dates: start: 2015
  44. BACLOFEN. [Concomitant]
     Active Substance: BACLOFEN
     Dates: start: 2015
  45. PREVACID [Suspect]
     Active Substance: LANSOPRAZOLE
     Indication: GASTROOESOPHAGEAL REFLUX DISEASE
     Route: 065
     Dates: start: 2002, end: 2017
  46. PREVACID [Suspect]
     Active Substance: LANSOPRAZOLE
     Indication: GASTROOESOPHAGEAL REFLUX DISEASE
     Route: 065
     Dates: start: 2002
  47. PROTONIX [Suspect]
     Active Substance: PANTOPRAZOLE SODIUM
     Indication: GASTROOESOPHAGEAL REFLUX DISEASE
     Route: 065
     Dates: start: 2002, end: 2017
  48. AZITHROMYCIN ANHYDROUS. [Concomitant]
     Active Substance: AZITHROMYCIN ANHYDROUS
     Indication: ANTIBIOTIC THERAPY
     Dosage: GENERIC
     Dates: start: 2017
  49. AMOXICILLIN. [Concomitant]
     Active Substance: AMOXICILLIN
     Indication: ANTIBIOTIC THERAPY
     Dates: start: 2011
  50. PENICILLIN [Concomitant]
     Active Substance: PENICILLIN
     Indication: ANTIBIOTIC THERAPY
     Dates: start: 2014
  51. ZITHROMAX [Concomitant]
     Active Substance: AZITHROMYCIN DIHYDRATE
     Indication: ANTIBIOTIC THERAPY
     Dates: start: 2005
  52. IBUPROFEN. [Concomitant]
     Active Substance: IBUPROFEN
     Indication: PAIN
     Dates: start: 2004
  53. TRIMOX [Concomitant]
     Active Substance: AMOXICILLIN
     Indication: ANTIBIOTIC THERAPY
     Dates: start: 2002
  54. ZYRTEC [Concomitant]
     Active Substance: CETIRIZINE HYDROCHLORIDE
     Indication: HYPERSENSITIVITY
     Dates: start: 2014
  55. RANITIDINE. [Concomitant]
     Active Substance: RANITIDINE
     Dates: start: 2016
  56. CLONAZEPAM. [Concomitant]
     Active Substance: CLONAZEPAM
     Dates: start: 2002
  57. PREDNISONE. [Concomitant]
     Active Substance: PREDNISONE
     Dates: start: 2013
  58. PREDNISONE. [Concomitant]
     Active Substance: PREDNISONE
     Dates: start: 2017
  59. ZOLPIDEM TARTRATE. [Concomitant]
     Active Substance: ZOLPIDEM TARTRATE
     Dates: start: 2002
  60. ZOLPIDEM TARTRATE. [Concomitant]
     Active Substance: ZOLPIDEM TARTRATE
     Dates: start: 2007
  61. ARIPIPRAZOLE. [Concomitant]
     Active Substance: ARIPIPRAZOLE
     Dates: start: 2013
  62. ARIPIPRAZOLE. [Concomitant]
     Active Substance: ARIPIPRAZOLE
     Dates: start: 2015
  63. ARIPIPRAZOLE. [Concomitant]
     Active Substance: ARIPIPRAZOLE
     Dates: start: 2017
  64. DULOXETINE. [Concomitant]
     Active Substance: DULOXETINE
     Dates: start: 2007
  65. DULOXETINE. [Concomitant]
     Active Substance: DULOXETINE
     Dates: start: 2015
  66. DULOXETINE. [Concomitant]
     Active Substance: DULOXETINE
     Dates: start: 2017
  67. ZALEPLON. [Concomitant]
     Active Substance: ZALEPLON
     Dates: start: 2001
  68. ZALEPLON. [Concomitant]
     Active Substance: ZALEPLON
     Dates: start: 2016
  69. BACLOFEN. [Concomitant]
     Active Substance: BACLOFEN
     Dates: start: 2001
  70. BACLOFEN. [Concomitant]
     Active Substance: BACLOFEN
     Dates: start: 2007
  71. BACLOFEN. [Concomitant]
     Active Substance: BACLOFEN
     Dates: start: 2016
  72. PRILOSEC OTC [Suspect]
     Active Substance: OMEPRAZOLE MAGNESIUM
     Route: 048
     Dates: start: 2002, end: 2017
  73. AMOXICILLIN. [Concomitant]
     Active Substance: AMOXICILLIN
     Indication: ANTIBIOTIC THERAPY
     Dates: start: 2015
  74. RANITIDINE. [Concomitant]
     Active Substance: RANITIDINE
     Dates: start: 2007
  75. RANITIDINE. [Concomitant]
     Active Substance: RANITIDINE
     Dates: start: 2011
  76. METRONIDAZOLE. [Concomitant]
     Active Substance: METRONIDAZOLE
     Dates: start: 2014
  77. KETOCONAZOLE. [Concomitant]
     Active Substance: KETOCONAZOLE
     Dates: start: 2012
  78. KETOCONAZOLE. [Concomitant]
     Active Substance: KETOCONAZOLE
     Dates: start: 2014
  79. PREDNISONE. [Concomitant]
     Active Substance: PREDNISONE
     Dates: start: 2001
  80. PREDNISONE. [Concomitant]
     Active Substance: PREDNISONE
     Dates: start: 2007
  81. PREDNISONE. [Concomitant]
     Active Substance: PREDNISONE
     Dates: start: 2015
  82. AMLODIPINE [Concomitant]
     Active Substance: AMLODIPINE BESYLATE
     Dates: start: 2001
  83. AMLODIPINE [Concomitant]
     Active Substance: AMLODIPINE BESYLATE
     Dates: start: 2007
  84. AMLODIPINE [Concomitant]
     Active Substance: AMLODIPINE BESYLATE
     Dates: start: 2017
  85. ZOLPIDEM TARTRATE. [Concomitant]
     Active Substance: ZOLPIDEM TARTRATE
     Dates: start: 2001
  86. ZOLPIDEM TARTRATE. [Concomitant]
     Active Substance: ZOLPIDEM TARTRATE
     Dates: start: 2011
  87. ZOLPIDEM TARTRATE. [Concomitant]
     Active Substance: ZOLPIDEM TARTRATE
     Dates: start: 2013
  88. DIAZEPAM. [Concomitant]
     Active Substance: DIAZEPAM
     Dates: start: 2001
  89. DIAZEPAM. [Concomitant]
     Active Substance: DIAZEPAM
     Dates: start: 2013
  90. DULOXETINE. [Concomitant]
     Active Substance: DULOXETINE
     Dates: start: 2011
  91. ZALEPLON. [Concomitant]
     Active Substance: ZALEPLON
     Dates: start: 2011
  92. PROTONIX [Suspect]
     Active Substance: PANTOPRAZOLE SODIUM
     Indication: GASTROOESOPHAGEAL REFLUX DISEASE
     Route: 065
     Dates: start: 2003
  93. PROTONIX [Suspect]
     Active Substance: PANTOPRAZOLE SODIUM
     Indication: GASTROOESOPHAGEAL REFLUX DISEASE
     Dosage: DRUG MENTIONED AS PANTOPRAZOLE-WYETH
     Route: 065
     Dates: start: 2011, end: 2012
  94. TRAMADOL. [Concomitant]
     Active Substance: TRAMADOL
     Indication: PAIN
     Dates: start: 2007
  95. BACTRIM [Concomitant]
     Active Substance: SULFAMETHOXAZOLE\TRIMETHOPRIM
     Indication: ANTIBIOTIC THERAPY
     Dates: start: 2010
  96. BACTRIM [Concomitant]
     Active Substance: SULFAMETHOXAZOLE\TRIMETHOPRIM
     Indication: ANTIBIOTIC THERAPY
     Dosage: GENERIC
     Dates: start: 2017
  97. AMOXICILLIN. [Concomitant]
     Active Substance: AMOXICILLIN
     Indication: ANTIBIOTIC THERAPY
     Dates: start: 2005
  98. AMOXICILLIN. [Concomitant]
     Active Substance: AMOXICILLIN
     Indication: ANTIBIOTIC THERAPY
     Dates: start: 2013
  99. CEFUROXIME AXETIL. [Concomitant]
     Active Substance: CEFUROXIME AXETIL
     Indication: ANTIBIOTIC THERAPY
     Dates: start: 2011
  100. CIPROFLOXACIN. [Concomitant]
     Active Substance: CIPROFLOXACIN
     Indication: ANTIBIOTIC THERAPY
     Dates: start: 2011
  101. ASPIRIN. [Concomitant]
     Active Substance: ASPIRIN
     Indication: COAGULOPATHY
     Dates: start: 2016
  102. RANITIDINE. [Concomitant]
     Active Substance: RANITIDINE
     Dates: start: 2002
  103. RANITIDINE. [Concomitant]
     Active Substance: RANITIDINE
     Dates: start: 2012
  104. RANITIDINE. [Concomitant]
     Active Substance: RANITIDINE
     Dates: start: 2014
  105. METRONIDAZOLE. [Concomitant]
     Active Substance: METRONIDAZOLE
     Dates: start: 2002
  106. CLONAZEPAM. [Concomitant]
     Active Substance: CLONAZEPAM
     Dates: start: 2014
  107. AMLODIPINE [Concomitant]
     Active Substance: AMLODIPINE BESYLATE
     Dates: start: 2012
  108. ZOLPIDEM TARTRATE. [Concomitant]
     Active Substance: ZOLPIDEM TARTRATE
     Dates: start: 2015
  109. ARIPIPRAZOLE. [Concomitant]
     Active Substance: ARIPIPRAZOLE
     Dates: start: 2012
  110. DIAZEPAM. [Concomitant]
     Active Substance: DIAZEPAM
     Dates: start: 2016
  111. DIAZEPAM. [Concomitant]
     Active Substance: DIAZEPAM
     Dates: start: 2017
  112. DULOXETINE. [Concomitant]
     Active Substance: DULOXETINE
     Dates: start: 2002
  113. BACLOFEN. [Concomitant]
     Active Substance: BACLOFEN
     Dates: start: 2012
  114. BACLOFEN. [Concomitant]
     Active Substance: BACLOFEN
     Dates: start: 2014
  115. PREVACID 24 HR [Suspect]
     Active Substance: LANSOPRAZOLE
     Route: 065
     Dates: start: 2002, end: 2017
  116. PROTONIX [Suspect]
     Active Substance: PANTOPRAZOLE SODIUM
     Indication: GASTROOESOPHAGEAL REFLUX DISEASE
     Route: 048
     Dates: start: 20110323
  117. ACIPHEX [Suspect]
     Active Substance: RABEPRAZOLE SODIUM
     Indication: GASTROOESOPHAGEAL REFLUX DISEASE
     Route: 065
     Dates: start: 2002, end: 2017
  118. TRAMADOL. [Concomitant]
     Active Substance: TRAMADOL
     Indication: PAIN
     Dates: start: 2008
  119. TRAMADOL. [Concomitant]
     Active Substance: TRAMADOL
     Indication: PAIN
     Dates: start: 2010
  120. HYDROXYCHLOROQUINE [Concomitant]
     Active Substance: HYDROXYCHLOROQUINE
     Indication: SYSTEMIC LUPUS ERYTHEMATOSUS
     Dates: start: 2011
  121. PENICILLIN [Concomitant]
     Active Substance: PENICILLIN
     Indication: ANTIBIOTIC THERAPY
     Dates: start: 2011
  122. CEPHALEXIN. [Concomitant]
     Active Substance: CEPHALEXIN
     Indication: ANTIBIOTIC THERAPY
     Dates: start: 2010
  123. RANITIDINE. [Concomitant]
     Active Substance: RANITIDINE
     Dates: start: 2015
  124. KETOCONAZOLE. [Concomitant]
     Active Substance: KETOCONAZOLE
     Dates: start: 2007
  125. KETOCONAZOLE. [Concomitant]
     Active Substance: KETOCONAZOLE
     Dates: start: 2013
  126. KETOCONAZOLE. [Concomitant]
     Active Substance: KETOCONAZOLE
     Dates: start: 2017
  127. CLONAZEPAM. [Concomitant]
     Active Substance: CLONAZEPAM
     Dates: start: 2012
  128. CLONAZEPAM. [Concomitant]
     Active Substance: CLONAZEPAM
     Dates: start: 2013
  129. PREDNISONE. [Concomitant]
     Active Substance: PREDNISONE
     Dates: start: 2002
  130. AMLODIPINE [Concomitant]
     Active Substance: AMLODIPINE BESYLATE
     Dates: start: 2013
  131. AMLODIPINE [Concomitant]
     Active Substance: AMLODIPINE BESYLATE
     Dates: start: 2015
  132. ZOLPIDEM TARTRATE. [Concomitant]
     Active Substance: ZOLPIDEM TARTRATE
     Dates: start: 2014
  133. ARIPIPRAZOLE. [Concomitant]
     Active Substance: ARIPIPRAZOLE
     Dates: start: 2007
  134. ARIPIPRAZOLE. [Concomitant]
     Active Substance: ARIPIPRAZOLE
     Dates: start: 2011
  135. DIAZEPAM. [Concomitant]
     Active Substance: DIAZEPAM
     Dates: start: 2011
  136. ZALEPLON. [Concomitant]
     Active Substance: ZALEPLON
     Dates: start: 2007
  137. ZALEPLON. [Concomitant]
     Active Substance: ZALEPLON
     Dates: start: 2012
  138. CLINDAMYCIN. [Concomitant]
     Active Substance: CLINDAMYCIN
     Indication: ANTIBIOTIC THERAPY
     Dates: start: 2014
  139. NITROFURANTOIN. [Concomitant]
     Active Substance: NITROFURANTOIN
     Indication: ANTIBIOTIC THERAPY
     Dates: start: 2013
  140. RANITIDINE. [Concomitant]
     Active Substance: RANITIDINE
     Dates: start: 2001
  141. METRONIDAZOLE. [Concomitant]
     Active Substance: METRONIDAZOLE
     Dates: start: 2011
  142. METRONIDAZOLE. [Concomitant]
     Active Substance: METRONIDAZOLE
     Dates: start: 2012
  143. METRONIDAZOLE. [Concomitant]
     Active Substance: METRONIDAZOLE
     Dates: start: 2013
  144. KETOCONAZOLE. [Concomitant]
     Active Substance: KETOCONAZOLE
     Dates: start: 2001
  145. KETOCONAZOLE. [Concomitant]
     Active Substance: KETOCONAZOLE
     Dates: start: 2011
  146. KETOCONAZOLE. [Concomitant]
     Active Substance: KETOCONAZOLE
     Dates: start: 2015
  147. AMLODIPINE [Concomitant]
     Active Substance: AMLODIPINE BESYLATE
     Dates: start: 2011
  148. ZOLPIDEM TARTRATE. [Concomitant]
     Active Substance: ZOLPIDEM TARTRATE
     Dates: start: 2017
  149. ZALEPLON. [Concomitant]
     Active Substance: ZALEPLON
     Dates: start: 2002
  150. ZALEPLON. [Concomitant]
     Active Substance: ZALEPLON
     Dates: start: 2017
  151. PROTONIX [Suspect]
     Active Substance: PANTOPRAZOLE SODIUM
     Indication: GASTROOESOPHAGEAL REFLUX DISEASE
     Dosage: GENERIC
     Route: 065
     Dates: start: 2002, end: 2017
  152. PROTONIX [Suspect]
     Active Substance: PANTOPRAZOLE SODIUM
     Indication: GASTROOESOPHAGEAL REFLUX DISEASE
     Route: 065
     Dates: start: 2012, end: 2017
  153. HYDROCODONE [Concomitant]
     Active Substance: HYDROCODONE
     Indication: PAIN
     Dates: start: 2013
  154. CIPRO [Concomitant]
     Active Substance: CIPROFLOXACIN HYDROCHLORIDE
     Indication: ANTIBIOTIC THERAPY
     Dates: start: 2001
  155. RANITIDINE. [Concomitant]
     Active Substance: RANITIDINE
     Dates: start: 2013
  156. RANITIDINE. [Concomitant]
     Active Substance: RANITIDINE
     Dates: start: 2017
  157. METRONIDAZOLE. [Concomitant]
     Active Substance: METRONIDAZOLE
     Dates: start: 2001
  158. CLONAZEPAM. [Concomitant]
     Active Substance: CLONAZEPAM
     Dates: start: 2017
  159. PREDNISONE. [Concomitant]
     Active Substance: PREDNISONE
     Dates: start: 2011
  160. AMLODIPINE [Concomitant]
     Active Substance: AMLODIPINE BESYLATE
     Dates: start: 2016
  161. ARIPIPRAZOLE. [Concomitant]
     Active Substance: ARIPIPRAZOLE
     Dates: start: 2016
  162. DIAZEPAM. [Concomitant]
     Active Substance: DIAZEPAM
     Dates: start: 2007
  163. DIAZEPAM. [Concomitant]
     Active Substance: DIAZEPAM
     Dates: start: 2015
  164. DULOXETINE. [Concomitant]
     Active Substance: DULOXETINE
     Dates: start: 2014
  165. DULOXETINE. [Concomitant]
     Active Substance: DULOXETINE
     Dates: start: 2016
  166. ZALEPLON. [Concomitant]
     Active Substance: ZALEPLON
     Dates: start: 2014
  167. BACLOFEN. [Concomitant]
     Active Substance: BACLOFEN
     Dates: start: 2002
  168. BACLOFEN. [Concomitant]
     Active Substance: BACLOFEN
     Dates: start: 2011

REACTIONS (6)
  - Chronic kidney disease [Not Recovered/Not Resolved]
  - Hypertension [Unknown]
  - Tubulointerstitial nephritis [Unknown]
  - Acute kidney injury [Unknown]
  - Anaemia [Unknown]
  - Renal failure [Unknown]

NARRATIVE: CASE EVENT DATE: 2010
